FAERS Safety Report 8872734 (Version 1)
Quarter: 2012Q4

REPORT INFORMATION
  Report Type: 
  Country: US (occurrence: US)
  Receive Date: 20121026
  Receipt Date: 20121026
  Transmission Date: 20130627
  Serious: No
  Sender: FDA-Public Use
  Company Number: US-AMGEN-USASP2012049807

PATIENT
  Age: 51 Year
  Sex: Female

DRUGS (7)
  1. ENBREL [Suspect]
     Indication: PRODUCT USED FOR UNKNOWN INDICATION
     Dosage: 50 mg, qwk
     Route: 058
  2. PREDNISONE [Concomitant]
     Dosage: 5 mg, UNK
  3. MULTI VIT CHOICE [Concomitant]
     Dosage: UNK
  4. CALCIUM + VIT D [Concomitant]
     Dosage: UNK
  5. VITAMIN D /00107901/ [Concomitant]
     Dosage: 1000 unit, UNK
  6. MAGNESIUM                          /00082501/ [Concomitant]
     Dosage: 300 mg, UNK
  7. BILBERRY                           /01397601/ [Concomitant]

REACTIONS (3)
  - Vomiting [Unknown]
  - Syncope [Unknown]
  - Pyrexia [Unknown]
